FAERS Safety Report 19770001 (Version 3)
Quarter: 2022Q2

REPORT INFORMATION
  Report Type: Spontaneous
  Country: US (occurrence: US)
  Receive Date: 20210831
  Receipt Date: 20220520
  Transmission Date: 20220721
  Serious: Yes (Other)
  Sender: FDA-Public Use
  Company Number: US-GILEAD-2021-0545371

PATIENT
  Age: 37 Year
  Sex: Male
  Weight: 88.435 kg

DRUGS (33)
  1. ATRIPLA [Suspect]
     Active Substance: EFAVIRENZ\EMTRICITABINE\TENOFOVIR DISOPROXIL FUMARATE
     Indication: HIV infection
     Dosage: UNK
     Route: 048
     Dates: start: 2008, end: 2018
  2. BIKTARVY [Concomitant]
     Active Substance: BICTEGRAVIR SODIUM\EMTRICITABINE\TENOFOVIR ALAFENAMIDE FUMARATE
  3. TIZANIDINE [Concomitant]
     Active Substance: TIZANIDINE
  4. FLOVENT [Concomitant]
     Active Substance: FLUTICASONE PROPIONATE
  5. ATORVASTATIN [Concomitant]
     Active Substance: ATORVASTATIN
  6. LISINOPRIL [Concomitant]
     Active Substance: LISINOPRIL
  7. CLONAZEPAM [Concomitant]
     Active Substance: CLONAZEPAM
  8. MONTELUKAST [Concomitant]
     Active Substance: MONTELUKAST SODIUM
  9. GABAPENTIN [Concomitant]
     Active Substance: GABAPENTIN
  10. ALBUTEROL [Concomitant]
     Active Substance: ALBUTEROL
  11. ESCITALOPRAM [Concomitant]
     Active Substance: ESCITALOPRAM OXALATE
  12. DULERA [Concomitant]
     Active Substance: FORMOTEROL FUMARATE DIHYDRATE\MOMETASONE FUROATE
  13. ADVAIR HFA [Concomitant]
     Active Substance: FLUTICASONE PROPIONATE\SALMETEROL XINAFOATE
  14. DIVALPROEX SODIUM [Concomitant]
     Active Substance: DIVALPROEX SODIUM
  15. OLANZAPINE [Concomitant]
     Active Substance: OLANZAPINE
  16. VALSARTAN [Concomitant]
     Active Substance: VALSARTAN
  17. METOPROLOL [Concomitant]
     Active Substance: METOPROLOL
  18. AMOXICILLIN [Concomitant]
     Active Substance: AMOXICILLIN
  19. WIXELA INHUB [Concomitant]
     Active Substance: FLUTICASONE PROPIONATE\SALMETEROL XINAFOATE
  20. OXCARBAZEPINE [Concomitant]
     Active Substance: OXCARBAZEPINE
  21. LOSARTAN [Concomitant]
     Active Substance: LOSARTAN
  22. CEPHALEXIN [Concomitant]
     Active Substance: CEPHALEXIN
  23. ADDERALL [Concomitant]
     Active Substance: AMPHETAMINE ASPARTATE\AMPHETAMINE SULFATE\DEXTROAMPHETAMINE SACCHARATE\DEXTROAMPHETAMINE SULFATE
  24. DULOXETINE [Concomitant]
     Active Substance: DULOXETINE
  25. QUETIAPINE FUMARATE [Concomitant]
     Active Substance: QUETIAPINE FUMARATE
  26. AZITHROMYCIN [Concomitant]
     Active Substance: AZITHROMYCIN
  27. DRONABINOL [Concomitant]
     Active Substance: DRONABINOL
  28. METAXALONE [Concomitant]
     Active Substance: METAXALONE
  29. METRONIDAZOLE [Concomitant]
     Active Substance: METRONIDAZOLE
  30. LEVOFLOXACIN [Concomitant]
     Active Substance: LEVOFLOXACIN
  31. NITROFURANTOIN [Concomitant]
     Active Substance: NITROFURANTOIN
  32. HYDROCHLOROTHIAZIDE [Concomitant]
     Active Substance: HYDROCHLOROTHIAZIDE
  33. NAPROXEN [Concomitant]
     Active Substance: NAPROXEN

REACTIONS (14)
  - Osteoporosis [Unknown]
  - Suicidal ideation [Not Recovered/Not Resolved]
  - Wrist fracture [Not Recovered/Not Resolved]
  - Hand fracture [Not Recovered/Not Resolved]
  - Osteopenia [Not Recovered/Not Resolved]
  - Pain [Not Recovered/Not Resolved]
  - Emotional distress [Not Recovered/Not Resolved]
  - Anxiety [Not Recovered/Not Resolved]
  - Anhedonia [Not Recovered/Not Resolved]
  - Bone density decreased [Unknown]
  - Skeletal injury [Unknown]
  - Rib fracture [Not Recovered/Not Resolved]
  - Loss of personal independence in daily activities [Not Recovered/Not Resolved]
  - Musculoskeletal disorder [Not Recovered/Not Resolved]

NARRATIVE: CASE EVENT DATE: 20170501
